FAERS Safety Report 23631740 (Version 1)
Quarter: 2024Q1

REPORT INFORMATION
  Report Type: Spontaneous
  Country: US (occurrence: None)
  Receive Date: 20240313
  Receipt Date: 20240313
  Transmission Date: 20240410
  Serious: Yes (unspecified)
  Sender: FDA-Public Use
  Company Number: None

PATIENT
  Age: 30 Year
  Sex: Female

DRUGS (1)
  1. CANNABIDIOL\HERBALS [Suspect]
     Active Substance: CANNABIDIOL\HERBALS

REACTIONS (6)
  - Accidental overdose [None]
  - Incoherent [None]
  - Sluggishness [None]
  - Dyskinesia [None]
  - Pollakiuria [None]
  - Disorientation [None]

NARRATIVE: CASE EVENT DATE: 20240229
